FAERS Safety Report 8135166-3 (Version None)
Quarter: 2012Q1

REPORT INFORMATION
  Report Type: 
  Country: None (occurrence: None)
  Receive Date: 20120214
  Receipt Date: 20120209
  Transmission Date: 20120608
  Serious: No
  Sender: FDA-Public Use
  Company Number: US-PFIZER INC-2012036510

PATIENT
  Sex: Male
  Weight: 88.889 kg

DRUGS (1)
  1. DILANTIN [Suspect]
     Indication: EPILEPSY
     Dosage: 100 MG, 2X/DAY
     Route: 048
     Dates: start: 19970101

REACTIONS (1)
  - DIZZINESS [None]
